FAERS Safety Report 8813156 (Version 1)
Quarter: 2012Q4

REPORT INFORMATION
  Report Type: 
  Country: US (occurrence: US)
  Receive Date: 20120927
  Receipt Date: 20120927
  Transmission Date: 20130627
  Serious: No
  Sender: FDA-Public Use
  Company Number: US-AMGEN-USASP2012038106

PATIENT
  Age: 71 Year
  Sex: Female

DRUGS (8)
  1. PROLIA [Suspect]
     Indication: OSTEOPOROSIS POSTMENOPAUSAL
     Dosage: 60 mg, q6mo
     Dates: start: 20111205
  2. VITAMIN D [Concomitant]
     Dosage: 1 IU, qd
  3. CALCIUM [Concomitant]
     Dosage: 1 mg, qd
  4. MICARDIS [Concomitant]
     Dosage: UNK UNK, qd
  5. SYNTHROID [Concomitant]
  6. VYTORIN [Concomitant]
  7. CARVEDILOL [Concomitant]
     Dosage: 3.125 mg, qd
  8. CARVEDILOL [Concomitant]
     Dosage: 6.25 mg, qd

REACTIONS (1)
  - Blood pressure increased [Not Recovered/Not Resolved]
